FAERS Safety Report 9354274 (Version 2)
Quarter: 2014Q1

REPORT INFORMATION
  Report Type: Report from Study
  Country: US (occurrence: US)
  Receive Date: 20130618
  Receipt Date: 20140127
  Transmission Date: 20141002
  Serious: Yes (Hospitalization)
  Sender: FDA-Public Use
  Company Number: US-ACTELION-A-US2013-84691

PATIENT
  Age: 55 Year
  Sex: Female

DRUGS (4)
  1. VELETRI [Suspect]
     Indication: PULMONARY ARTERIAL HYPERTENSION
     Dosage: 11 NG/KG, PER MIN
     Route: 042
     Dates: start: 20120615
  2. LETAIRIS [Concomitant]
  3. SILDENAFIL [Concomitant]
  4. COUMADIN [Concomitant]

REACTIONS (5)
  - Cerebrovascular accident [Unknown]
  - Convulsion [Unknown]
  - Syncope [Unknown]
  - Headache [Unknown]
  - Dizziness [Unknown]
